FAERS Safety Report 25572171 (Version 1)
Quarter: 2025Q3

REPORT INFORMATION
  Report Type: Spontaneous
  Country: US (occurrence: US)
  Receive Date: 20250717
  Receipt Date: 20250717
  Transmission Date: 20251020
  Serious: No
  Sender: ABBVIE
  Company Number: US-ABBVIE-6368583

PATIENT
  Sex: Female

DRUGS (2)
  1. FETZIMA [Suspect]
     Active Substance: LEVOMILNACIPRAN HYDROCHLORIDE
     Indication: Major depression
     Route: 048
  2. THYROID [Concomitant]
     Active Substance: LEVOTHYROXINE\LIOTHYRONINE
     Indication: Product used for unknown indication

REACTIONS (2)
  - Off label use [Unknown]
  - Constipation [Not Recovered/Not Resolved]
